FAERS Safety Report 7699572-3 (Version None)
Quarter: 2011Q3

REPORT INFORMATION
  Report Type: 
  Country: None (occurrence: None)
  Receive Date: 20110822
  Receipt Date: 20110811
  Transmission Date: 20111222
  Serious: Yes (Hospitalization)
  Sender: FDA-Public Use
  Company Number: DE-BIOGENIDEC-2011BI023160

PATIENT
  Age: 51 Year
  Sex: Female

DRUGS (3)
  1. TYSABRI [Suspect]
     Indication: RELAPSING-REMITTING MULTIPLE SCLEROSIS
     Route: 042
     Dates: start: 20100823, end: 20110506
  2. TYSABRI [Suspect]
     Route: 042
     Dates: start: 20110701
  3. PANTOPRAZOLE [Concomitant]
     Indication: GASTRITIS
     Route: 048

REACTIONS (1)
  - IRON DEFICIENCY ANAEMIA [None]
